FAERS Safety Report 6832189-9 (Version None)
Quarter: 2010Q3

REPORT INFORMATION
  Report Type: 
  Country: None (occurrence: None)
  Receive Date: 20100712
  Receipt Date: 20100707
  Transmission Date: 20110219
  Serious: Yes (Disabling)
  Sender: FDA-Public Use
  Company Number: GB-EISAI INC.-E2020-07017-SPO-GB

PATIENT
  Age: 89 Year
  Sex: Female

DRUGS (3)
  1. ARICEPT [Suspect]
     Indication: DEMENTIA
     Route: 048
     Dates: start: 20100526, end: 20100604
  2. ARICEPT [Suspect]
     Route: 048
     Dates: start: 20100612
  3. AMISULPRIDE [Concomitant]
     Indication: AGITATION
     Dosage: 75 MG
     Dates: start: 20100318

REACTIONS (3)
  - FEELING ABNORMAL [None]
  - IMPAIRED SELF-CARE [None]
  - SOMNOLENCE [None]
